FAERS Safety Report 8303779-1 (Version None)
Quarter: 2012Q2

REPORT INFORMATION
  Report Type: 
  Country: None (occurrence: None)
  Receive Date: 20120420
  Receipt Date: 20120420
  Transmission Date: 20120825
  Serious: Yes (Hospitalization)
  Sender: FDA-Public Use
  Company Number: None

PATIENT
  Age: 46 Year
  Sex: Male
  Weight: 106.68 kg

DRUGS (2)
  1. PROCHLORPERAZINE [Suspect]
     Indication: DRUG DETOXIFICATION
     Dosage: 10 MG PRN IM
     Route: 030
     Dates: start: 20081104, end: 20081106
  2. PROCHLORPERAZINE [Suspect]
     Indication: NAUSEA
     Dosage: 10 MG PRN IM
     Route: 030
     Dates: start: 20081104, end: 20081106

REACTIONS (5)
  - MUSCLE TIGHTNESS [None]
  - ANXIETY [None]
  - MUSCLE SPASMS [None]
  - DYSKINESIA [None]
  - DYSTONIA [None]
